FAERS Safety Report 4952386-7 (Version None)
Quarter: 2006Q1

REPORT INFORMATION
  Report Type: 
  Country: None (occurrence: None)
  Receive Date: 20060317
  Receipt Date: 20060306
  Transmission Date: 20060701
  Serious: Yes (Hospitalization)
  Sender: FDA-Public Use
  Company Number: 2005EU001513

PATIENT
  Age: 68 Year
  Sex: Female

DRUGS (9)
  1. FK506            (TACROLIMUS) [Suspect]
     Indication: LIVER TRANSPLANT
     Dosage: 3.00 MG, ORAL
     Route: 048
     Dates: start: 20050429
  2. DACLIZUMAB (DACLIZUMAB) [Suspect]
     Indication: LIVER TRANSPLANT
     Dosage: 120.00 MG, IV NOS
     Route: 042
     Dates: start: 20050424
  3. MYCOPHENOLATE MOFETIL [Suspect]
     Indication: LIVER TRANSPLANT
     Dosage: 1000.00 MG, BID, IV NOS
     Route: 042
     Dates: start: 20050424
  4. METHYLPREDNISOLONE [Suspect]
     Indication: LIVER TRANSPLANT
     Dosage: 500.00 MG, UID/QD,
     Dates: start: 20040424, end: 20050424
  5. PREDNISOLONE [Suspect]
     Indication: LIVER TRANSPLANT
     Dosage: 5.00 MG, UID/QD,
     Dates: start: 20050428
  6. APROTININ [Concomitant]
  7. COTRIM FORTE (SULFAMETHOXAZOLE, TRIMETHOPRIM) [Concomitant]
  8. INSULIN [Concomitant]
  9. METAMIZOL SODIQUE            (METAMIZOLE SODIUM MONOHYDRATE) [Concomitant]

REACTIONS (1)
  - ENDOCARDITIS [None]
